FAERS Safety Report 6076343-5 (Version None)
Quarter: 2009Q1

REPORT INFORMATION
  Report Type: 
  Country: None (occurrence: None)
  Receive Date: 20090209
  Receipt Date: 20090127
  Transmission Date: 20090719
  Serious: Yes (Death)
  Sender: FDA-Public Use
  Company Number: KV200900133

PATIENT
  Age: 84 Year
  Sex: Female
  Weight: 54 kg

DRUGS (6)
  1. ISOSORBIDE MONONITRATE [Suspect]
     Indication: BLOOD PRESSURE ABNORMAL
     Dosage: UNK, UNK, ORAL
     Route: 048
     Dates: start: 20080401, end: 20080501
  2. ANTIVERT [Concomitant]
  3. DONNATAL [Concomitant]
  4. SYNTHROID [Concomitant]
  5. ATENOLO (ATENOLOL) [Concomitant]
  6. NORVASC [Concomitant]

REACTIONS (7)
  - CARDIAC FAILURE CONGESTIVE [None]
  - CHOLECYSTITIS [None]
  - FALL [None]
  - PALPITATIONS [None]
  - PRODUCT QUALITY ISSUE [None]
  - RENAL FAILURE ACUTE [None]
  - RIB FRACTURE [None]
